FAERS Safety Report 7631479-X (Version None)
Quarter: 2011Q3

REPORT INFORMATION
  Report Type: 
  Country: None (occurrence: None)
  Receive Date: 20110725
  Receipt Date: 20110720
  Transmission Date: 20111222
  Serious: Yes (Death, Other)
  Sender: FDA-Public Use
  Company Number: US-JNJFOC-20110707410

PATIENT
  Age: 94 Year
  Sex: Male

DRUGS (5)
  1. CLOPIDOGREL [Concomitant]
     Route: 050
  2. REOPRO [Suspect]
     Dosage: INTRA- ARTERIAL BOLUS- DOSE NOT CLEARLY DOCUMENTED.
     Route: 013
  3. HEPARIN [Suspect]
     Indication: PRODUCT USED FOR UNKNOWN INDICATION
     Route: 040
  4. REOPRO [Suspect]
     Indication: CORONARY ARTERY THROMBOSIS
     Dosage: IV INFUSION ADMINISTERED AT A RATE OF 0.125 MCG/KG/MIN
     Route: 042
  5. ASPIRIN [Concomitant]
     Route: 060

REACTIONS (5)
  - INTRAVENTRICULAR HAEMORRHAGE [None]
  - SUBDURAL HAEMORRHAGE [None]
  - HAEMORRHAGE INTRACRANIAL [None]
  - INCORRECT ROUTE OF DRUG ADMINISTRATION [None]
  - SUBARACHNOID HAEMORRHAGE [None]
